FAERS Safety Report 8973207 (Version 1)
Quarter: 2012Q4

REPORT INFORMATION
  Report Type: 
  Country: US (occurrence: US)
  Receive Date: 20121219
  Receipt Date: 20121219
  Transmission Date: 20130627
  Serious: Yes (Other)
  Sender: FDA-Public Use
  Company Number: US-MERCK-1212USA006400

PATIENT

DRUGS (1)
  1. PEGINTRON [Suspect]

REACTIONS (1)
  - Acute respiratory distress syndrome [Unknown]
